FAERS Safety Report 4871137-8 (Version None)
Quarter: 2005Q4

REPORT INFORMATION
  Report Type: 
  Country: None (occurrence: None)
  Receive Date: 20051229
  Receipt Date: 20051215
  Transmission Date: 20060501
  Serious: Yes (Death, Hospitalization)
  Sender: FDA-Public Use
  Company Number: JP_050907595

PATIENT
  Age: 74 Year
  Sex: Male
  Weight: 51 kg

DRUGS (13)
  1. GEMZAR [Suspect]
     Indication: PANCREATIC CARCINOMA STAGE IV
     Dosage: SEE IMAGE
     Route: 042
     Dates: start: 20040630, end: 20040101
  2. GEMZAR [Suspect]
     Indication: PANCREATIC CARCINOMA STAGE IV
     Dosage: SEE IMAGE
     Route: 042
     Dates: start: 20040609, end: 20040601
  3. TS [Concomitant]
  4. OMEPRAZOLE [Concomitant]
  5. PRIMPERAN TAB [Concomitant]
  6. AMLODIPINE BESYLATE [Concomitant]
  7. MAGLAX /JPN/ (MAGNESIUM OXIDE) [Concomitant]
  8. LAXOBERON (SODIUM PICOSULFATE) [Concomitant]
  9. GASMOTIN (MOSAPRIDE CITRATE) [Concomitant]
  10. FENTANYL [Concomitant]
  11. VOLTAREN [Concomitant]
  12. DECADRON [Concomitant]
  13. SEROTONE (AZASETRON HYDROCHLORIDE) [Concomitant]

REACTIONS (8)
  - CARDIAC FAILURE [None]
  - CHOLANGITIS ACUTE [None]
  - DISSEMINATED INTRAVASCULAR COAGULATION [None]
  - MALIGNANT NEOPLASM PROGRESSION [None]
  - PANCREATIC CARCINOMA [None]
  - PLEURAL EFFUSION [None]
  - PNEUMONITIS [None]
  - RENAL FAILURE [None]
